FAERS Safety Report 6124219-7 (Version None)
Quarter: 2009Q1

REPORT INFORMATION
  Report Type: 
  Country: None (occurrence: None)
  Receive Date: 20090319
  Receipt Date: 20090311
  Transmission Date: 20090719
  Serious: Yes (Disabling, Other)
  Sender: FDA-Public Use
  Company Number: US-GILEAD-2009-0020129

PATIENT
  Sex: Female

DRUGS (18)
  1. LETAIRIS [Suspect]
     Indication: PULMONARY ARTERIAL HYPERTENSION
     Route: 048
     Dates: start: 20080826, end: 20090119
  2. METOPROLOL TARTRATE [Concomitant]
  3. LASIX [Concomitant]
  4. DILANTIN [Concomitant]
  5. CLONIDINE [Concomitant]
  6. MINOXIDIL [Concomitant]
  7. LIPITOR [Concomitant]
  8. SYNTHROID [Concomitant]
  9. COLCHICINE [Concomitant]
  10. ASPIRIN [Concomitant]
  11. DARVOCET [Concomitant]
  12. PHENERGAN [Concomitant]
  13. PHOSLO [Concomitant]
  14. PRINIVIL [Concomitant]
  15. RENAGEL [Concomitant]
  16. REQUIP [Concomitant]
  17. ULTRAM [Concomitant]
  18. NEPHROCAPS [Concomitant]

REACTIONS (5)
  - HALLUCINATION, VISUAL [None]
  - LIVER FUNCTION TEST ABNORMAL [None]
  - MENTAL STATUS CHANGES [None]
  - NAUSEA [None]
  - VOMITING [None]
